FAERS Safety Report 8522712 (Version 2)
Quarter: 2013Q2

REPORT INFORMATION
  Report Type: Spontaneous
  Country: US (occurrence: US)
  Receive Date: 20120419
  Receipt Date: 20130425
  Transmission Date: 20140414
  Serious: Yes (Other)
  Sender: FDA-Public Use
  Company Number: US-ELI_LILLY_AND_COMPANY-US201111006207

PATIENT
  Sex: Female

DRUGS (4)
  1. FORTEO [Suspect]
     Indication: OSTEOPOROSIS POSTMENOPAUSAL
     Dosage: 20 UG, QD
     Dates: start: 20111108
  2. FORTEO [Suspect]
     Dosage: 20 UG, QD
  3. FORTEO [Suspect]
     Dosage: 20 UG, QD
  4. FORTEO [Suspect]
     Dosage: 20 UG, QD

REACTIONS (11)
  - Nerve injury [Unknown]
  - Spinal column stenosis [Unknown]
  - Sciatica [Not Recovered/Not Resolved]
  - Fall [Unknown]
  - Skin injury [Unknown]
  - Injection site haemorrhage [Unknown]
  - Injection site bruising [Unknown]
  - Muscle spasms [Unknown]
  - Muscle disorder [Unknown]
  - Fall [Unknown]
  - Back injury [Unknown]
